FAERS Safety Report 15857423 (Version 1)
Quarter: 2019Q1

REPORT INFORMATION
  Report Type: Spontaneous
  Country: CH (occurrence: CH)
  Receive Date: 20190123
  Receipt Date: 20190123
  Transmission Date: 20190417
  Serious: Yes (Other)
  Sender: FDA-Public Use
  Company Number: PHHY2019CH013372

PATIENT

DRUGS (8)
  1. VINCRISTINE [Suspect]
     Active Substance: VINCRISTINE
     Indication: ACUTE LYMPHOCYTIC LEUKAEMIA
     Dosage: 2 MG, UNK (ON DAY 1,8,15 AND 22 OF CYCLE 1)
     Route: 042
  2. NILOTINIB [Suspect]
     Active Substance: NILOTINIB
     Indication: ACUTE LYMPHOCYTIC LEUKAEMIA
     Dosage: 400 MG, Q12H (ON DAY 1-28 OF CYCLE 1)
     Route: 048
  3. NILOTINIB [Suspect]
     Active Substance: NILOTINIB
     Dosage: 400 MG, Q12H (ON DAY 1-28 OF CYCLE 3)
     Route: 048
  4. DEXAMETHASONE. [Suspect]
     Active Substance: DEXAMETHASONE
     Dosage: 40 MG, UNK (ON DAY1-2,8-9,15-16,22-23 OF CYCLE 3)
     Route: 048
  5. DEXAMETHASONE. [Suspect]
     Active Substance: DEXAMETHASONE
     Indication: ACUTE LYMPHOCYTIC LEUKAEMIA
     Dosage: 40 MG, UNK (ON DAY1-2,8-9,15-16,22-23 OF CYCLE 1)
     Route: 048
  6. VINCRISTINE [Suspect]
     Active Substance: VINCRISTINE
     Dosage: 2 MG, UNK (ON DAY 1,8,15 AND 22 OF CYCLE 3)
     Route: 042
  7. METHOTREXATE. [Suspect]
     Active Substance: METHOTREXATE
     Indication: ACUTE LYMPHOCYTIC LEUKAEMIA
     Dosage: 1 G/M2, UNK (ON DAY 1 OF CYCLE 2)
     Route: 042
  8. NILOTINIB [Suspect]
     Active Substance: NILOTINIB
     Dosage: 400 MG, Q12H (ON DAY 1-28 OF CYCLE 2)
     Route: 048

REACTIONS (1)
  - Cytopenia [Unknown]
